FAERS Safety Report 16208549 (Version 1)
Quarter: 2019Q2

REPORT INFORMATION
  Report Type: Spontaneous
  Country: US (occurrence: US)
  Receive Date: 20190417
  Receipt Date: 20190417
  Transmission Date: 20190711
  Serious: Yes (Other)
  Sender: FDA-Public Use
  Company Number: US-FRESENIUS KABI-FK201904233

PATIENT
  Age: 67 Year
  Sex: Male

DRUGS (3)
  1. MESNA. [Suspect]
     Active Substance: MESNA
     Indication: LIPOSARCOMA
     Dosage: 2.5 G/M2 PER DAY CONTINUOUS INFUSION ON DAYS 14
     Route: 042
  2. IFOSFAMIDE (MANUFACTURER UNKNOWN) [Suspect]
     Active Substance: IFOSFAMIDE
     Indication: LIPOSARCOMA
     Dosage: 2.5 G/M2 PER DAY CONTINUOUS INFUSION ON DAYS 13
     Route: 042
  3. DOXORUBICIN [Suspect]
     Active Substance: DOXORUBICIN
     Indication: LIPOSARCOMA
     Dosage: PER DAY CONTINUOUS INFUSION ON DAYS 13
     Route: 042

REACTIONS (1)
  - Subacute inflammatory demyelinating polyneuropathy [Recovered/Resolved]
